FAERS Safety Report 25097761 (Version 1)
Quarter: 2025Q1

REPORT INFORMATION
  Report Type: Spontaneous
  Country: ID (occurrence: ID)
  Receive Date: 20250320
  Receipt Date: 20250320
  Transmission Date: 20250408
  Serious: Yes (Other)
  Sender: ROCHE
  Company Number: ID-ROCHE-10000229726

PATIENT

DRUGS (1)
  1. KADCYLA [Suspect]
     Active Substance: ADO-TRASTUZUMAB EMTANSINE
     Indication: Breast cancer metastatic
     Route: 065
     Dates: start: 202405, end: 202412

REACTIONS (2)
  - Dyspnoea [Not Recovered/Not Resolved]
  - Pulmonary oedema [Unknown]
